FAERS Safety Report 21669456 (Version 1)
Quarter: 2022Q4

REPORT INFORMATION
  Report Type: Spontaneous
  Country: EG (occurrence: EG)
  Receive Date: 20221201
  Receipt Date: 20221201
  Transmission Date: 20230112
  Serious: Yes (Other)
  Sender: FDA-Public Use
  Company Number: EG-PFIZER INC-PV202200114217

PATIENT
  Age: 45 Year
  Sex: Female

DRUGS (8)
  1. IBRANCE [Suspect]
     Active Substance: PALBOCICLIB
     Indication: Hormone receptor positive breast cancer
     Dosage: 125 MG, CYCLIC
     Route: 048
     Dates: start: 20210108
  2. IBRANCE [Suspect]
     Active Substance: PALBOCICLIB
     Indication: Breast cancer metastatic
  3. FASLODEX [Concomitant]
     Active Substance: FULVESTRANT
     Dosage: 500 MG, CYCLIC [ONE VIAL EVERY 2 WEEKS FOR ONE MONTH THEN ONE VIAL]
  4. ZOLADEX [Concomitant]
     Active Substance: GOSERELIN ACETATE
     Dosage: 0.8 UNK [ONE VIAL EVERY 3 MONTHS]
  5. NEXIUM I.V. [Concomitant]
     Active Substance: ESOMEPRAZOLE SODIUM
     Dosage: 40 MG [40MG ONE TAB BEFORE BREAKFAST]
  6. OSTEOCARE [DIACEREIN;GLUCOSAMINE;METHYLSULFONYLMETHANE] [Concomitant]
     Dosage: 600 MG, DAILY [600MG ONE CAP DAILY]
  7. XGEVA [Concomitant]
     Active Substance: DENOSUMAB
     Dosage: 120 MG [ONE VIAL EVERY 3 MONTHS]
  8. URSODIOL [Concomitant]
     Active Substance: URSODIOL
     Dosage: 1 DF, 2X/DAY [ONE CAP 2 TIMES DAILY]

REACTIONS (1)
  - Pulmonary oedema [Unknown]
